FAERS Safety Report 24314354 (Version 1)
Quarter: 2024Q3

REPORT INFORMATION
  Report Type: Spontaneous
  Country: TR (occurrence: TR)
  Receive Date: 20240913
  Receipt Date: 20240913
  Transmission Date: 20241016
  Serious: Yes (Other)
  Sender: ABBVIE
  Company Number: TR-ABBVIE-5916922

PATIENT
  Sex: Female

DRUGS (2)
  1. VENETOCLAX [Suspect]
     Active Substance: VENETOCLAX
     Indication: Acute myeloid leukaemia
     Route: 048
     Dates: start: 20231215
  2. VENETOCLAX [Suspect]
     Active Substance: VENETOCLAX
     Indication: Acute myeloid leukaemia
     Dosage: RESTARTED
     Route: 048

REACTIONS (11)
  - Febrile neutropenia [Unknown]
  - Anal fissure [Unknown]
  - Leukopenia [Unknown]
  - Anaemia [Unknown]
  - Deep vein thrombosis [Unknown]
  - Nausea [Unknown]
  - Off label use [Unknown]
  - Vomiting [Unknown]
  - Neutropenia [Unknown]
  - Fall [Unknown]
  - Thrombocytopenia [Unknown]

NARRATIVE: CASE EVENT DATE: 20231231
